FAERS Safety Report 8495946-1 (Version None)
Quarter: 2012Q3

REPORT INFORMATION
  Report Type: 
  Country: None (occurrence: None)
  Receive Date: 20120709
  Receipt Date: 20120702
  Transmission Date: 20120928
  Serious: Yes (Other)
  Sender: FDA-Public Use
  Company Number: US-GLAXOSMITHKLINE-A0983038A

PATIENT
  Sex: Male

DRUGS (8)
  1. CALCIUM + VITAMIN D [Concomitant]
  2. CALCIUM + MAGNESIUM [Concomitant]
  3. THERAGRAN M [Concomitant]
  4. FOSAMAX [Concomitant]
  5. HORIZANT [Suspect]
     Indication: RESTLESS LEGS SYNDROME
     Dosage: 600MG AT NIGHT
     Route: 048
     Dates: start: 20120602
  6. LUPRON [Concomitant]
  7. PRAVACHOL [Concomitant]
  8. NIACIN [Concomitant]

REACTIONS (2)
  - HAEMORRHAGE [None]
  - HAEMORRHAGE URINARY TRACT [None]
